FAERS Safety Report 13811396 (Version 2)
Quarter: 2017Q3

REPORT INFORMATION
  Report Type: Spontaneous
  Country: US (occurrence: US)
  Receive Date: 20170728
  Receipt Date: 20170808
  Transmission Date: 20171127
  Serious: No
  Sender: FDA-Public Use
  Company Number: US-ROCHE-801545

PATIENT
  Age: 70 Year
  Sex: Female

DRUGS (3)
  1. BONIVA [Suspect]
     Active Substance: IBANDRONATE SODIUM
     Indication: OSTEOPOROSIS
     Dosage: DURATION: 9 MONTHS
     Route: 048
  2. BISPHOSPHONATE NOS [Suspect]
     Active Substance: UNSPECIFIED INGREDIENT
     Indication: OSTEOPOROSIS
     Dosage: DURATION: 5 YEARS
     Route: 048
  3. FOSAMAX [Concomitant]
     Active Substance: ALENDRONATE SODIUM
     Route: 065

REACTIONS (1)
  - Tooth loss [Unknown]

NARRATIVE: CASE EVENT DATE: 20110902
